FAERS Safety Report 4839025-0 (Version None)
Quarter: 2005Q4

REPORT INFORMATION
  Report Type: 
  Country: None (occurrence: None)
  Receive Date: 20051031
  Receipt Date: 20050824
  Transmission Date: 20060501
  Serious: No
  Sender: FDA-Public Use
  Company Number: 200516354US

PATIENT
  Sex: Male

DRUGS (3)
  1. KETEK [Suspect]
     Indication: SINUSITIS
     Dosage: 400MG QD PO
     Route: 048
  2. KETEK [Suspect]
     Indication: SINUSITIS
     Dosage: 400MG QD PO
     Route: 048
  3. ATIVAN [Concomitant]

REACTIONS (1)
  - VISION BLURRED [None]
